FAERS Safety Report 13123904 (Version 3)
Quarter: 2017Q2

REPORT INFORMATION
  Report Type: Report from Study
  Country: IT (occurrence: IT)
  Receive Date: 20170118
  Receipt Date: 20170516
  Transmission Date: 20170830
  Serious: Yes (Hospitalization)
  Sender: FDA-Public Use
  Company Number: IT-BAXTER-2017BAX000815

PATIENT
  Age: 51 Year
  Sex: Female

DRUGS (38)
  1. VENETOCLAX [Suspect]
     Active Substance: VENETOCLAX
     Indication: DIFFUSE LARGE B-CELL LYMPHOMA
     Dosage: MOST RECENT DOSE PRIOR TO GRADE 3 DUODENAL STENOSIS
     Route: 048
     Dates: start: 20161123
  2. VINCRISTINE [Suspect]
     Active Substance: VINCRISTINE
     Indication: NON-HODGKIN^S LYMPHOMA
     Dosage: INTRAVENOUS PUSH
     Route: 042
     Dates: start: 20161006
  3. ACICLOVIR [Concomitant]
     Active Substance: ACYCLOVIR
     Indication: ANTIVIRAL PROPHYLAXIS
     Route: 065
     Dates: start: 20161005
  4. ZARZIO [Concomitant]
     Active Substance: FILGRASTIM
     Indication: NEUTROPENIA
     Route: 065
     Dates: start: 20161011
  5. CLINIMIX N12G20 [Concomitant]
     Indication: NAUSEA
     Route: 065
  6. RITUXIMAB [Suspect]
     Active Substance: RITUXIMAB
     Indication: DIFFUSE LARGE B-CELL LYMPHOMA
     Dosage: MOST RECENT DOSE PRIOR TO GRADE 3 DUODENAL STENOSIS
     Route: 042
     Dates: start: 20161117
  7. ANTRA [Concomitant]
     Active Substance: OMEPRAZOLE
     Indication: PROPHYLAXIS AGAINST GASTROINTESTINAL ULCER
     Route: 065
     Dates: start: 20161216, end: 20170104
  8. ENDOXAN BAXTER [Suspect]
     Active Substance: CYCLOPHOSPHAMIDE
     Indication: NON-HODGKIN^S LYMPHOMA
     Dosage: MOST RECENT DOSE PRIOR TO GRADE 3 PYLORIC GASTRIC STENOSIS
     Route: 042
     Dates: start: 20161006
  9. ENDOXAN BAXTER [Suspect]
     Active Substance: CYCLOPHOSPHAMIDE
     Indication: DIFFUSE LARGE B-CELL LYMPHOMA
     Dosage: MOST RECENT DOSE PRIOR TO GRADE 3 DUODENAL STENOSIS
     Route: 042
     Dates: start: 20161117
  10. VENETOCLAX [Suspect]
     Active Substance: VENETOCLAX
     Dosage: CYCLE 5
     Route: 048
     Dates: start: 20170104
  11. DOXORUBICIN [Suspect]
     Active Substance: DOXORUBICIN
     Route: 042
     Dates: start: 20170104
  12. PREDNISONE. [Suspect]
     Active Substance: PREDNISONE
     Indication: DIFFUSE LARGE B-CELL LYMPHOMA
     Dosage: MOST RECENT DOSE PRIOR TO GRADE 3 DUODENAL STENOSIS
     Route: 048
     Dates: start: 20161121
  13. ZYLORIC [Concomitant]
     Active Substance: ALLOPURINOL
     Indication: PROPHYLAXIS
     Route: 065
     Dates: start: 20161005, end: 20161117
  14. LEVOBREN [Concomitant]
     Active Substance: LEVOSULPIRIDE
     Indication: NAUSEA
     Route: 065
     Dates: start: 20161105, end: 20161117
  15. ENDOXAN BAXTER [Suspect]
     Active Substance: CYCLOPHOSPHAMIDE
     Dosage: MOST RECENT DOSE PRIOR TO GRADE 3
     Route: 042
     Dates: start: 20170126
  16. VENETOCLAX [Suspect]
     Active Substance: VENETOCLAX
     Dosage: MOST RECENT DOSE PRIOR TO THE ONSET OF GRADE 3 PYLORIC GASTRIC STENOSIS
     Route: 048
     Dates: start: 20170216
  17. PREDNISONE. [Suspect]
     Active Substance: PREDNISONE
     Dosage: CYCLE 5
     Route: 048
     Dates: start: 20170104
  18. VENETOCLAX [Suspect]
     Active Substance: VENETOCLAX
     Indication: NON-HODGKIN^S LYMPHOMA
     Route: 048
     Dates: start: 20161009
  19. DOXORUBICIN [Suspect]
     Active Substance: DOXORUBICIN
     Dosage: MOST RECENT DOSE PRIOR TO GRADE 3 PYLORIC GASTRIC STENOSIS
     Route: 042
     Dates: start: 20170126
  20. VINCRISTINE [Suspect]
     Active Substance: VINCRISTINE
     Indication: DIFFUSE LARGE B-CELL LYMPHOMA
     Dosage: MOST RECENT DOSE PRIOR TO GRADE 3 DUODENAL STENOSIS
     Route: 042
     Dates: start: 20161117
  21. VINCRISTINE [Suspect]
     Active Substance: VINCRISTINE
     Dosage: CYCLE 5
     Route: 042
     Dates: start: 20170104
  22. METFORMIN [Concomitant]
     Active Substance: METFORMIN HYDROCHLORIDE
     Indication: DIABETES MELLITUS
     Route: 065
  23. RABEPRAZOLE [Concomitant]
     Active Substance: RABEPRAZOLE
     Indication: PROPHYLAXIS AGAINST GASTROINTESTINAL ULCER
     Route: 065
     Dates: start: 20161005, end: 20161215
  24. PARACETAMOL [Concomitant]
     Active Substance: ACETAMINOPHEN
     Indication: GASTROINTESTINAL PAIN
     Route: 065
     Dates: start: 20161012, end: 20161027
  25. ENDOXAN BAXTER [Suspect]
     Active Substance: CYCLOPHOSPHAMIDE
     Dosage: CYCLE 5
     Route: 042
     Dates: start: 20170104
  26. DOXORUBICIN [Suspect]
     Active Substance: DOXORUBICIN
     Indication: NON-HODGKIN^S LYMPHOMA
     Route: 042
     Dates: start: 20161006
  27. PREDNISONE. [Suspect]
     Active Substance: PREDNISONE
     Indication: NON-HODGKIN^S LYMPHOMA
     Dosage: ON DAYS 1 TO 5 OF EACH CYCLE (CYCLE: 21 DAYS) (TOTAL 6 CYCLES)
     Route: 048
     Dates: start: 20161006
  28. BACTRIM [Concomitant]
     Active Substance: SULFAMETHOXAZOLE\TRIMETHOPRIM
     Indication: INFECTION PROPHYLAXIS
     Route: 065
     Dates: start: 20161005
  29. ENSURE [Concomitant]
     Active Substance: AMINO ACIDS\DEXTROSE\ELECTROLYTES NOS\SOYBEAN OIL\VITAMINS
     Indication: WEIGHT INCREASED
     Dosage: NUTRITIONAL SUPPLEMENT
     Route: 065
     Dates: start: 20161005, end: 20161212
  30. RABEPRAZOLE [Concomitant]
     Active Substance: RABEPRAZOLE
     Route: 065
     Dates: start: 20170104
  31. ZARZIO [Concomitant]
     Active Substance: FILGRASTIM
     Indication: PROPHYLAXIS
     Route: 065
     Dates: start: 20161105, end: 20161108
  32. RITUXIMAB [Suspect]
     Active Substance: RITUXIMAB
     Indication: NON-HODGKIN^S LYMPHOMA
     Dosage: TOTAL 6 CYCLES WITH CHOP
     Route: 042
     Dates: start: 20161005
  33. RITUXIMAB [Suspect]
     Active Substance: RITUXIMAB
     Dosage: CYCLE 5
     Route: 042
     Dates: start: 20170104
  34. RITUXIMAB [Suspect]
     Active Substance: RITUXIMAB
     Dosage: MOST RECENT DOSE PRIOR TO THE ONSET OF GRADE 3 PYLORIC GASTRIC STENOSIS
     Route: 042
     Dates: start: 20170216
  35. DOXORUBICIN [Suspect]
     Active Substance: DOXORUBICIN
     Indication: DIFFUSE LARGE B-CELL LYMPHOMA
     Dosage: MOST RECENT DOSE PRIOR TO GRADE 3 DUODENAL STENOSIS
     Route: 042
     Dates: start: 20161117
  36. VINCRISTINE [Suspect]
     Active Substance: VINCRISTINE
     Dosage: (PUSH) MOST RECENT DOSE PRIOR TO GRADE 3 PYLORIC GASTRIC STENOSIS
     Route: 042
     Dates: start: 20170126
  37. PREDNISONE. [Suspect]
     Active Substance: PREDNISONE
     Dosage: MOST RECENT DOSE PRIOR TO GRADE 3 PYLORIC GASTRIC STENOSIS
     Route: 048
     Dates: start: 20170130
  38. TACHIPIRIN [Concomitant]
     Indication: PROPHYLAXIS
     Route: 065
     Dates: start: 20161011

REACTIONS (2)
  - Pyloric stenosis [Recovered/Resolved]
  - Duodenal stenosis [Recovered/Resolved]

NARRATIVE: CASE EVENT DATE: 20161123
